FAERS Safety Report 5228431-0 (Version None)
Quarter: 2007Q1

REPORT INFORMATION
  Report Type: 
  Country: None (occurrence: None)
  Receive Date: 20070131
  Receipt Date: 20070115
  Transmission Date: 20070707
  Serious: Yes (Congenital Anomaly, Other)
  Sender: FDA-Public Use
  Company Number: 2006EU001962

PATIENT
  Weight: 1.3 kg

DRUGS (3)
  1. VESICARE [Suspect]
     Dosage: 10 MG, UID/QD, TRANSPLANCENTAL
     Route: 064
  2. FOLIC ACID [Concomitant]
  3. CELESTONE [Concomitant]

REACTIONS (7)
  - APGAR SCORE LOW [None]
  - CAESAREAN SECTION [None]
  - DRUG EXPOSURE DURING PREGNANCY [None]
  - FOETAL GROWTH RETARDATION [None]
  - HAEMANGIOMA CONGENITAL [None]
  - PREMATURE BABY [None]
  - SMALL FOR DATES BABY [None]
